FAERS Safety Report 16157682 (Version 1)
Quarter: 2019Q2

REPORT INFORMATION
  Report Type: Spontaneous
  Country: US (occurrence: US)
  Receive Date: 20190404
  Receipt Date: 20190404
  Transmission Date: 20190711
  Serious: No
  Sender: FDA-Public Use
  Company Number: US-PFIZER INC-2018309033

PATIENT
  Age: 71 Year
  Sex: Male
  Weight: 88.44 kg

DRUGS (5)
  1. DOXEPIN HCL [Suspect]
     Active Substance: DOXEPIN HYDROCHLORIDE
     Dosage: UNK
     Dates: end: 2006
  2. DOXEPIN HCL [Suspect]
     Active Substance: DOXEPIN HYDROCHLORIDE
     Dosage: 75 MG, UNK
  3. DOXEPIN HCL [Suspect]
     Active Substance: DOXEPIN HYDROCHLORIDE
     Dosage: 50 MG, UNK
  4. DOXEPIN HCL [Suspect]
     Active Substance: DOXEPIN HYDROCHLORIDE
     Dosage: 100 MG, UNK
  5. DOXEPIN HCL [Suspect]
     Active Substance: DOXEPIN HYDROCHLORIDE
     Indication: SLEEP DISORDER
     Dosage: 25 MG, UNK

REACTIONS (33)
  - Irritability [Unknown]
  - Wheezing [Not Recovered/Not Resolved]
  - Hallucination, visual [Unknown]
  - Hallucination, auditory [Unknown]
  - Chest discomfort [Unknown]
  - Vision blurred [Unknown]
  - Weight increased [Unknown]
  - Peripheral swelling [Unknown]
  - Abdominal pain [Unknown]
  - Feeling hot [Unknown]
  - Nightmare [Unknown]
  - Hyperhidrosis [Unknown]
  - Cold sweat [Unknown]
  - Dizziness [Unknown]
  - Thirst [Unknown]
  - Oropharyngeal pain [Unknown]
  - Joint swelling [Unknown]
  - Fatigue [Unknown]
  - Chest pain [Unknown]
  - Dry mouth [Unknown]
  - Headache [Unknown]
  - Swelling face [Unknown]
  - Cough [Unknown]
  - Depression [Unknown]
  - Hunger [Unknown]
  - Hallucination [Unknown]
  - Gait disturbance [Unknown]
  - Gingival bleeding [Unknown]
  - Muscle spasms [Unknown]
  - Asthenia [Unknown]
  - Tinnitus [Not Recovered/Not Resolved]
  - Dyspnoea [Unknown]
  - Tremor [Unknown]
